FAERS Safety Report 16431574 (Version 1)
Quarter: 2019Q2

REPORT INFORMATION
  Report Type: Report from Study
  Country: US (occurrence: US)
  Receive Date: 20190614
  Receipt Date: 20190614
  Transmission Date: 20190711
  Serious: Yes (Death, Hospitalization, Other)
  Sender: FDA-Public Use
  Company Number: US-PFIZER INC-2019131947

PATIENT
  Age: 90 Year
  Sex: Female

DRUGS (3)
  1. IBRANCE [Suspect]
     Active Substance: PALBOCICLIB
     Dosage: 75 MG, CYCLIC (FOR 21 DAYS OF A 28 DAY CYCLE)
     Route: 048
     Dates: start: 20190421, end: 201906
  2. IBRANCE [Suspect]
     Active Substance: PALBOCICLIB
     Dosage: 125 MG, CYCLIC (DAILY FOR 21 DAYS OF A 28-DAY)
     Route: 048
     Dates: start: 20190310, end: 20190401
  3. IBRANCE [Suspect]
     Active Substance: PALBOCICLIB
     Indication: BREAST CANCER FEMALE
     Dosage: 125 MG, CYCLIC (DAILY FOR 21 DAYS OF A 28-DAY)
     Route: 048
     Dates: start: 20190310, end: 20190327

REACTIONS (8)
  - Depression [Unknown]
  - Fall [Unknown]
  - Urinary tract infection [Unknown]
  - Platelet count decreased [Recovered/Resolved]
  - Cerebrovascular accident [Unknown]
  - Dysphagia [Unknown]
  - Agitation [Unknown]
  - Death [Fatal]

NARRATIVE: CASE EVENT DATE: 2019
